FAERS Safety Report 8303378-1 (Version None)
Quarter: 2012Q2

REPORT INFORMATION
  Report Type: 
  Country: None (occurrence: None)
  Receive Date: 20120423
  Receipt Date: 20120413
  Transmission Date: 20120825
  Serious: No
  Sender: FDA-Public Use
  Company Number: US-BIOGENIDEC-2012BI012885

PATIENT
  Sex: Female

DRUGS (1)
  1. AVONEX [Suspect]
     Indication: MULTIPLE SCLEROSIS
     Route: 030
     Dates: start: 20110108

REACTIONS (4)
  - MEMORY IMPAIRMENT [None]
  - INFLUENZA LIKE ILLNESS [None]
  - PARAESTHESIA [None]
  - HYPERAESTHESIA [None]
